FAERS Safety Report 24145770 (Version 1)
Quarter: 2024Q3

REPORT INFORMATION
  Report Type: Report from Study
  Country: US (occurrence: None)
  Receive Date: 20240729
  Receipt Date: 20240729
  Transmission Date: 20241016
  Serious: Yes (Other)
  Sender: ASTRAZENECA
  Company Number: 2021A613485

PATIENT
  Sex: Female

DRUGS (2)
  1. BRILINTA [Suspect]
     Active Substance: TICAGRELOR
     Indication: Myocardial infarction
     Route: 048
  2. ASPIRIN [Suspect]
     Active Substance: ASPIRIN
     Indication: Aneurysm repair
     Route: 048

REACTIONS (1)
  - Intracranial aneurysm [Recovering/Resolving]
